FAERS Safety Report 4849661-3 (Version None)
Quarter: 2005Q4

REPORT INFORMATION
  Report Type: 
  Country: None (occurrence: None)
  Receive Date: 20051115
  Receipt Date: 20051010
  Transmission Date: 20060501
  Serious: No
  Sender: FDA-Public Use
  Company Number: S05-USA-04564-01

PATIENT
  Age: 89 Year
  Sex: Female

DRUGS (3)
  1. NAMENDA [Suspect]
     Indication: AMNESIA
     Dosage: 5 MG BID PO
     Route: 048
     Dates: start: 20051001, end: 20051004
  2. NAMENDA [Suspect]
     Indication: AMNESIA
     Dosage: 5 MG BID PO
     Route: 048
     Dates: start: 20051008
  3. NAMENDA [Suspect]
     Indication: AMNESIA
     Dosage: 5 MG QD PO
     Route: 048
     Dates: start: 20050901, end: 20051001

REACTIONS (3)
  - BALANCE DISORDER [None]
  - CONTUSION [None]
  - FALL [None]
